FAERS Safety Report 6144974-X (Version None)
Quarter: 2009Q2

REPORT INFORMATION
  Report Type: 
  Country: None (occurrence: None)
  Receive Date: 20090406
  Receipt Date: 20090324
  Transmission Date: 20091009
  Serious: Yes (Other)
  Sender: FDA-Public Use
  Company Number: RU-GENENTECH-280305

PATIENT
  Age: 57 Year
  Sex: Male

DRUGS (4)
  1. AVASTIN [Suspect]
     Indication: COLORECTAL CANCER METASTATIC
     Dosage: UNK MG, QD
     Route: 042
     Dates: start: 20090218
  2. AVASTIN [Suspect]
     Dosage: 395 MG, QD
  3. XELODA [Suspect]
     Indication: COLORECTAL CANCER METASTATIC
     Dosage: UNK MG, UNK
     Route: 048
     Dates: start: 20090218
  4. XELODA [Suspect]
     Dosage: 4500 MG, QD

REACTIONS (1)
  - HYPERBILIRUBINAEMIA [None]
